FAERS Safety Report 15904289 (Version 1)
Quarter: 2019Q1

REPORT INFORMATION
  Report Type: Spontaneous
  Country: DE (occurrence: DE)
  Receive Date: 20190204
  Receipt Date: 20190204
  Transmission Date: 20190417
  Serious: Yes (Other)
  Sender: FDA-Public Use
  Company Number: DE-BRISTOL-MYERS SQUIBB COMPANY-BMS-2019-008047

PATIENT
  Age: 81 Year
  Sex: Female

DRUGS (1)
  1. GLUCOPHAGE [Suspect]
     Active Substance: METFORMIN HYDROCHLORIDE
     Indication: PRODUCT USED FOR UNKNOWN INDICATION
     Dosage: 500, BID (EARLY IN THE MORNING AND IN THE EVENING)
     Route: 065

REACTIONS (8)
  - Abdominal pain upper [Not Recovered/Not Resolved]
  - Gastric disorder [Not Recovered/Not Resolved]
  - Lip pain [Recovering/Resolving]
  - Open angle glaucoma [Not Recovered/Not Resolved]
  - Nausea [Not Recovered/Not Resolved]
  - Hypertension [Not Recovered/Not Resolved]
  - Foaming at mouth [Not Recovered/Not Resolved]
  - Diverticulitis [Not Recovered/Not Resolved]
